FAERS Safety Report 13065254 (Version 1)
Quarter: 2016Q4

REPORT INFORMATION
  Report Type: Spontaneous
  Country: BE (occurrence: BE)
  Receive Date: 20161227
  Receipt Date: 20161227
  Transmission Date: 20170207
  Serious: Yes (Other)
  Sender: FDA-Public Use
  Company Number: BE-PFIZER INC-2016590619

PATIENT
  Sex: Male

DRUGS (4)
  1. LYRICA [Suspect]
     Active Substance: PREGABALIN
     Dosage: 75 MG, ALTERNATE DAY
     Dates: start: 2016
  2. BACLOFENE [Concomitant]
     Active Substance: BACLOFEN
     Dosage: UNK
  3. LYRICA [Suspect]
     Active Substance: PREGABALIN
     Dosage: 75 MG, 1X/DAY
     Route: 048
     Dates: start: 2010, end: 2016
  4. ISOBETADINE [Concomitant]
     Dosage: UNK

REACTIONS (6)
  - Septic shock [Unknown]
  - Hypersomnia [Unknown]
  - Dry mouth [Unknown]
  - Pyrexia [Unknown]
  - Withdrawal syndrome [Unknown]
  - Muscle spasms [Unknown]

NARRATIVE: CASE EVENT DATE: 2016
